FAERS Safety Report 7318368-5 (Version None)
Quarter: 2011Q1

REPORT INFORMATION
  Report Type: 
  Country: None (occurrence: None)
  Receive Date: 20110228
  Receipt Date: 20110216
  Transmission Date: 20110831
  Serious: Yes (Hospitalization, Other)
  Sender: FDA-Public Use
  Company Number: PHHY2010NZ56558

PATIENT
  Sex: Female

DRUGS (6)
  1. MOVIPREP [Concomitant]
  2. BENZTROPINE MESYLATE [Concomitant]
     Dosage: 02 MG MANE
  3. CLOZARIL [Suspect]
     Indication: SCHIZOPHRENIA
     Dosage: UNK
     Dates: start: 20090731
  4. CYCLOPHOSPHAMIDE [Concomitant]
  5. COLOXYL [Concomitant]
     Dosage: 02 DF
  6. SENNA [Concomitant]
     Dosage: 02 DF

REACTIONS (3)
  - NON-HODGKIN'S LYMPHOMA [None]
  - WHITE BLOOD CELL COUNT DECREASED [None]
  - NEUTROPHIL COUNT DECREASED [None]
